FAERS Safety Report 9563006 (Version 1)
Quarter: 2013Q3

REPORT INFORMATION
  Report Type: Spontaneous
  Country: FR (occurrence: FR)
  Receive Date: 20130927
  Receipt Date: 20130927
  Transmission Date: 20140515
  Serious: Yes (Other)
  Sender: FDA-Public Use
  Company Number: PHHY2013FR107229

PATIENT
  Age: 49 Year
  Sex: Male

DRUGS (4)
  1. AZATHIOPRINE [Suspect]
     Indication: COLITIS ULCERATIVE
     Dosage: 2 MG/KG,/DAY
     Dates: start: 200801
  2. AZATHIOPRINE [Suspect]
     Dosage: 2.5 MG/KG/DAY
  3. PREDNISONE [Suspect]
     Indication: COLITIS ULCERATIVE
  4. CIPROFLOXACIN [Suspect]
     Indication: COLITIS ULCERATIVE

REACTIONS (2)
  - General physical health deterioration [Unknown]
  - Treatment failure [Unknown]
